FAERS Safety Report 11815685 (Version 1)
Quarter: 2015Q4

REPORT INFORMATION
  Report Type: Spontaneous
  Country: KZ (occurrence: KZ)
  Receive Date: 20151209
  Receipt Date: 20151209
  Transmission Date: 20160305
  Serious: Yes (Life-Threatening)
  Sender: FDA-Public Use
  Company Number: KZ-IMPAX LABORATORIES, INC-2015-IPXL-01269

PATIENT
  Age: 7 Year
  Sex: Female
  Weight: 16 kg

DRUGS (4)
  1. ALBENZA [Suspect]
     Active Substance: ALBENDAZOLE
     Indication: GIARDIASIS
     Dosage: 400 MG, 1 /DAY
     Route: 048
     Dates: start: 2009, end: 2009
  2. ALBENZA [Suspect]
     Active Substance: ALBENDAZOLE
     Dosage: 400 MG, 1 /DAY
     Route: 048
     Dates: start: 201405
  3. MACMIROR [Concomitant]
     Indication: PRODUCT USED FOR UNKNOWN INDICATION
     Dosage: UNK
     Route: 065
     Dates: start: 201405, end: 201405
  4. INTETRIX [Concomitant]
     Indication: PRODUCT USED FOR UNKNOWN INDICATION
     Dosage: UNK
     Route: 065
     Dates: start: 201405, end: 201405

REACTIONS (3)
  - Giardiasis [None]
  - Drug ineffective [Recovering/Resolving]
  - Disease recurrence [Recovering/Resolving]

NARRATIVE: CASE EVENT DATE: 201405
